FAERS Safety Report 12834433 (Version 1)
Quarter: 2016Q4

REPORT INFORMATION
  Report Type: Spontaneous
  Country: US (occurrence: US)
  Receive Date: 20161010
  Receipt Date: 20161010
  Transmission Date: 20170207
  Serious: Yes (Other)
  Sender: FDA-Public Use
  Company Number: US-TEVA-701220USA

PATIENT
  Sex: Female

DRUGS (1)
  1. COPAXONE [Suspect]
     Active Substance: GLATIRAMER ACETATE
     Indication: MULTIPLE SCLEROSIS
     Dosage: DOSAGE FORM NOT REPORTED
     Route: 065

REACTIONS (6)
  - Malaise [Unknown]
  - Central nervous system lesion [Unknown]
  - JC virus test positive [Unknown]
  - Drug ineffective [Unknown]
  - Injection site reaction [Unknown]
  - Multiple sclerosis relapse [Unknown]
